FAERS Safety Report 6843939-X (Version None)
Quarter: 2010Q3

REPORT INFORMATION
  Report Type: 
  Country: None (occurrence: None)
  Receive Date: 20100714
  Receipt Date: 20100714
  Transmission Date: 20110219
  Serious: Yes (Other)
  Sender: FDA-Public Use
  Company Number: None

PATIENT
  Sex: Female
  Weight: 81.6475 kg

DRUGS (2)
  1. CYMBALTA [Suspect]
     Indication: DEPRESSION
     Dosage: 120 MG PER DAY ONCE PO
     Route: 048
     Dates: start: 20081220, end: 20100705
  2. CYMBALTA [Suspect]
     Indication: FIBROMYALGIA
     Dosage: 120 MG PER DAY ONCE PO
     Route: 048
     Dates: start: 20081220, end: 20100705

REACTIONS (15)
  - ABDOMINAL PAIN UPPER [None]
  - AMNESIA [None]
  - ARTHRALGIA [None]
  - DISTURBANCE IN ATTENTION [None]
  - DIZZINESS [None]
  - ELECTRIC SHOCK [None]
  - HYPERACUSIS [None]
  - INFLUENZA LIKE ILLNESS [None]
  - INSOMNIA [None]
  - MYALGIA [None]
  - NAUSEA [None]
  - NIGHTMARE [None]
  - PHOTOPHOBIA [None]
  - PRURITUS [None]
  - WITHDRAWAL SYNDROME [None]
